FAERS Safety Report 6358849-4 (Version None)
Quarter: 2009Q3

REPORT INFORMATION
  Report Type: 
  Country: None (occurrence: None)
  Receive Date: 20090916
  Receipt Date: 20090909
  Transmission Date: 20100115
  Serious: No
  Sender: FDA-Public Use
  Company Number: US-ABBOTT-09P-163-0596291-00

PATIENT
  Sex: Female

DRUGS (2)
  1. TRILIPIX [Suspect]
     Indication: BLOOD TRIGLYCERIDES INCREASED
     Dosage: 135MG DAILY
     Dates: start: 20090101, end: 20090101
  2. TRILIPIX [Suspect]
     Dates: start: 20090101, end: 20090101

REACTIONS (3)
  - INCORRECT DRUG ADMINISTRATION DURATION [None]
  - MYALGIA [None]
  - NAUSEA [None]
